FAERS Safety Report 14662694 (Version 1)
Quarter: 2018Q1

REPORT INFORMATION
  Report Type: Spontaneous
  Country: US (occurrence: US)
  Receive Date: 20180321
  Receipt Date: 20180321
  Transmission Date: 20180509
  Serious: No
  Sender: FDA-Public Use
  Company Number: US-MALLINCKRODT-T201702466

PATIENT
  Sex: Male
  Weight: 94 kg

DRUGS (1)
  1. UVADEX [Suspect]
     Active Substance: METHOXSALEN
     Indication: MYCOSIS FUNGOIDES
     Dosage: UNK
     Route: 042
     Dates: start: 2011, end: 20170501

REACTIONS (4)
  - Somnolence [Unknown]
  - Vessel puncture site haemorrhage [Recovered/Resolved]
  - Vessel puncture site bruise [Unknown]
  - Vascular injury [Unknown]
